FAERS Safety Report 13983873 (Version 1)
Quarter: 2017Q3

REPORT INFORMATION
  Report Type: Report from Study
  Country: IL (occurrence: IL)
  Receive Date: 20170918
  Receipt Date: 20170918
  Transmission Date: 20171128
  Serious: Yes (Death, Hospitalization)
  Sender: FDA-Public Use
  Company Number: PHHY2014IL176835

PATIENT
  Sex: Male
  Weight: 56.5 kg

DRUGS (1)
  1. VOTRIENT [Suspect]
     Active Substance: PAZOPANIB HYDROCHLORIDE
     Indication: RENAL CELL CARCINOMA
     Dosage: 800 MG, QD
     Route: 048
     Dates: start: 20140525, end: 20140718

REACTIONS (7)
  - Malignant neoplasm progression [Fatal]
  - Jaundice [Unknown]
  - Vomiting [Unknown]
  - Renal cell carcinoma [Fatal]
  - Hepatotoxicity [Not Recovered/Not Resolved]
  - Nausea [Unknown]
  - Abdominal pain [Unknown]

NARRATIVE: CASE EVENT DATE: 20140713
